FAERS Safety Report 16079778 (Version 1)
Quarter: 2019Q1

REPORT INFORMATION
  Report Type: Spontaneous
  Country: MY (occurrence: MY)
  Receive Date: 20190315
  Receipt Date: 20190315
  Transmission Date: 20190418
  Serious: Yes (Hospitalization)
  Sender: FDA-Public Use
  Company Number: MY-ASTRAZENECA-2019SE41340

PATIENT
  Age: 1 Month
  Sex: Female
  Weight: 1.7 kg

DRUGS (1)
  1. SYNAGIS [Suspect]
     Active Substance: PALIVIZUMAB
     Indication: ANTIVIRAL PROPHYLAXIS
     Route: 030
     Dates: start: 20190307

REACTIONS (3)
  - Apnoea [Unknown]
  - Pneumonia [Unknown]
  - Decreased activity [Unknown]

NARRATIVE: CASE EVENT DATE: 20190307
